FAERS Safety Report 24046457 (Version 2)
Quarter: 2024Q4

REPORT INFORMATION
  Report Type: Spontaneous
  Country: TR (occurrence: TR)
  Receive Date: 20240703
  Receipt Date: 20241008
  Transmission Date: 20250114
  Serious: Yes (Hospitalization, Other)
  Sender: NOVO NORDISK
  Company Number: TR-NOVOPROD-1243964

PATIENT
  Age: 752 Month
  Sex: Female
  Weight: 56 kg

DRUGS (4)
  1. ASPIRIN [Concomitant]
     Active Substance: ASPIRIN
     Indication: Cardiac disorder
     Dosage: 20 MG X 1 TABLET
     Dates: start: 202404
  2. SYNJARDY [Concomitant]
     Active Substance: EMPAGLIFLOZIN\METFORMIN HYDROCHLORIDE
     Indication: Diabetes mellitus
     Dosage: 1000 MG X 1 TABLET
     Dates: start: 2023
  3. INSULIN ASPART\INSULIN DEGLUDEC [Suspect]
     Active Substance: INSULIN ASPART\INSULIN DEGLUDEC
     Indication: Product used for unknown indication
     Dosage: 46 IU, QD (30 IU MORNING + 16 IU EVENING)
  4. COLSIN [Concomitant]
     Indication: Blood cholesterol abnormal
     Dosage: 0.5 MG X 1 TABLET
     Dates: start: 202404

REACTIONS (2)
  - Vascular occlusion [Unknown]
  - Wrong technique in product usage process [Unknown]
